FAERS Safety Report 4410023-4 (Version None)
Quarter: 2004Q3

REPORT INFORMATION
  Report Type: 
  Country: None (occurrence: None)
  Receive Date: 20040726
  Receipt Date: 20040715
  Transmission Date: 20050211
  Serious: No
  Sender: FDA-Public Use
  Company Number: 04H-062-0267264-00

PATIENT
  Age: 55 Year
  Sex: Male

DRUGS (1)
  1. HEPARIN SODIUM [Suspect]
     Indication: POLYNEUROPATHY

REACTIONS (2)
  - HEPARIN-INDUCED THROMBOCYTOPENIA [None]
  - TRANSIENT ISCHAEMIC ATTACK [None]
